FAERS Safety Report 8859919 (Version 1)
Quarter: 2012Q4

REPORT INFORMATION
  Report Type: Report from Study
  Country: JP (occurrence: JP)
  Receive Date: 20121025
  Receipt Date: 20121025
  Transmission Date: 20130627
  Serious: Yes (Other)
  Sender: FDA-Public Use
  Company Number: JP-VERTEX PHARMACEUTICAL INC.-AE-2012-008782

PATIENT
  Age: 69 Year
  Sex: Male

DRUGS (12)
  1. VX-950 [Suspect]
     Indication: HEPATITIS C
     Dosage: 2250 mg, qd
     Route: 048
     Dates: start: 20120302
  2. RIBAVIRIN [Suspect]
     Indication: HEPATITIS C
     Dosage: 800 mg, qd
     Route: 048
     Dates: start: 20120302, end: 20120329
  3. RIBAVIRIN [Suspect]
     Dosage: 600 mg, qd
     Route: 048
     Dates: start: 20120330, end: 20120405
  4. RIBAVIRIN [Suspect]
     Dosage: 400 mg, qd
     Route: 048
     Dates: start: 20120406, end: 20120412
  5. RIBAVIRIN [Suspect]
     Dosage: 200 mg, qd
     Route: 048
     Dates: start: 20120413
  6. PEGINTERFERON ALFA-2B [Suspect]
     Indication: HEPATITIS C
     Dosage: 1.5 ?g/kg, UNK
     Route: 058
     Dates: start: 20120302, end: 20120412
  7. PEGINTERFERON ALFA-2B [Suspect]
     Dosage: 80 ?g, UNK
     Route: 058
     Dates: start: 20120413
  8. LOCHOL                             /01224502/ [Concomitant]
     Dosage: 20 mg, qd
     Route: 048
     Dates: start: 20120302
  9. ONEALFA [Concomitant]
     Dosage: 1 ?g, qd
     Route: 048
     Dates: start: 20120302
  10. ALOSITOL [Concomitant]
     Dosage: 100 mg, qd
     Route: 048
     Dates: start: 20120406
  11. LOXONIN [Concomitant]
     Dosage: 60 DF, qd
     Route: 048
  12. GASTER [Concomitant]
     Dosage: 20 DF, qd
     Route: 048

REACTIONS (2)
  - Retinal haemorrhage [Recovered/Resolved]
  - Erythema [Recovered/Resolved]
